FAERS Safety Report 9517908 (Version 1)
Quarter: 2013Q1

REPORT INFORMATION
  Report Type: Spontaneous
  Country: US (occurrence: None)
  Receive Date: 20130305
  Receipt Date: 20130305
  Transmission Date: 20140127
  Serious: Yes (Other)
  Sender: FDA-Public Use
  Company Number: 163-21880-12114099

PATIENT
  Age: 69 Year
  Sex: Male

DRUGS (9)
  1. REVLIMID [Suspect]
     Indication: PLASMA CELL MYELOMA
     Dosage: 1 IN 1 D
     Route: 048
     Dates: start: 201209
  2. DEXAMETHASONE (DEXAMETHASONE) [Concomitant]
  3. LASIX (FUROSEMIDE) (TABLETS) [Concomitant]
  4. LEVEMIR (INSULIN DETEMIR) [Concomitant]
  5. LIPITOR (ATORVASTATIN) [Concomitant]
  6. NOVOLOG (INSULIN ASPART) [Concomitant]
  7. POTASSIUM BICARBONATE (POTASSIUM BICARBONATE) [Concomitant]
  8. VALACYCLOVIR (VALACICLOVIR) [Concomitant]
  9. VELCADE (BORTEZOMIB) [Concomitant]

REACTIONS (2)
  - White blood cell count decreased [None]
  - Neuropathy peripheral [None]
